FAERS Safety Report 9668245 (Version 2)
Quarter: 2013Q4

REPORT INFORMATION
  Report Type: Report from Study
  Country: JP (occurrence: JP)
  Receive Date: 20131104
  Receipt Date: 20131213
  Transmission Date: 20140711
  Serious: Yes (Hospitalization, Other)
  Sender: FDA-Public Use
  Company Number: JP-TAKEDA-2013TJP002362

PATIENT
  Age: 84 Year
  Sex: Male
  Weight: 48 kg

DRUGS (13)
  1. LANSOPRAZOLE [Suspect]
     Indication: PROPHYLAXIS AGAINST GASTROINTESTINAL ULCER
     Dosage: 15 MG, QD
     Route: 048
     Dates: start: 20120928, end: 20121119
  2. BAYASPIRIN [Concomitant]
     Indication: THROMBOSIS PROPHYLAXIS
     Dosage: 100 MG, 1 DAYS
     Route: 048
  3. URIEF [Concomitant]
     Dosage: 8 MG, 1 DAYS
     Route: 048
  4. HERBESSER R [Concomitant]
     Dosage: 100 MG, 1 DAY
     Route: 048
  5. SUNRYTHM [Concomitant]
     Dosage: 100 MG, 1 DAYS
     Route: 048
  6. JUVELA N [Concomitant]
     Dosage: 200 MG, 1 DAYS
     Route: 048
  7. LENDORMIN D [Concomitant]
     Dosage: 0.25 MG, 1 DAYS
     Route: 048
  8. DEPAS [Concomitant]
     Dosage: 0.5 MG, 1 DAYS
     Route: 048
  9. GASMOTIN [Concomitant]
     Dosage: 5 MG, 1 DAYS
     Route: 048
  10. LAC B [Concomitant]
     Dosage: 1.5 G, 1 DAYS
     Route: 048
  11. NITROPEN [Concomitant]
     Dosage: 0.3 MG, 1 DAY
     Route: 060
     Dates: start: 20120925
  12. MAINTATE [Concomitant]
     Dosage: 0.625 MG,1 DAY
     Route: 048
     Dates: start: 20120928
  13. SOLYUGEN G [Concomitant]
     Dosage: 500 ML, 1 DAYS
     Route: 042
     Dates: start: 20120928

REACTIONS (4)
  - Cardiac failure [Recovered/Resolved]
  - Cardiac failure [Recovered/Resolved]
  - Angina pectoris [Recovering/Resolving]
  - Depression [Recovering/Resolving]
